FAERS Safety Report 10239436 (Version 2)
Quarter: 2015Q1

REPORT INFORMATION
  Report Type: Spontaneous
  Country: US (occurrence: None)
  Receive Date: 20140612
  Receipt Date: 20150306
  Transmission Date: 20150720
  Serious: Yes (Hospitalization)
  Sender: FDA-Public Use
  Company Number: UNT-2014-000812

PATIENT
  Age: 59 Year
  Sex: Male

DRUGS (15)
  1. REVATIO (SILDENAFIL CITRATE) [Concomitant]
  2. NEXIUM [Concomitant]
     Active Substance: ESOMEPRAZOLE MAGNESIUM
  3. SPIRONOLACTONE (SPITRONOLACTONE) [Concomitant]
  4. TRAZODONE [Concomitant]
     Active Substance: TRAZODONE HYDROCHLORIDE
  5. COUMADIN (WARFARIN SODIUM) INHALATION, GAS , 0.6MG/ML [Concomitant]
  6. LANTUS [Concomitant]
     Active Substance: INSULIN GLARGINE
  7. VALACYCLOVIR (VALACICLOVIR HYDROCHLORIDE [Concomitant]
  8. ATENOLOL (ATENOLOL) [Concomitant]
     Active Substance: ATENOLOL
  9. COLACE [Concomitant]
     Active Substance: DOCUSATE SODIUM
  10. ATOVAQUONE  (ATOVAQUONE) [Concomitant]
  11. PREDNISONE (PREDNISONE) [Concomitant]
     Active Substance: PREDNISONE
  12. MILRINONE (MILRINONE) [Concomitant]
     Active Substance: MILRINONE
  13. TYVASO [Suspect]
     Active Substance: TREPROSTINIL
     Indication: PULMONARY ARTERIAL HYPERTENSION
     Route: 055
     Dates: start: 20131226
  14. TORASEMIDE (TORASEMIDE) [Concomitant]
     Active Substance: TORSEMIDE
  15. SENNA (SENNOSIDE A+B) [Concomitant]

REACTIONS (7)
  - Septic shock [None]
  - Multi-organ failure [None]
  - Respiratory failure [None]
  - Mental status changes [None]
  - Parainfluenzae virus infection [None]
  - Pseudomonal bacteraemia [None]
  - Device issue [None]

NARRATIVE: CASE EVENT DATE: 201403
